FAERS Safety Report 8720618 (Version 2)
Quarter: 2012Q4

REPORT INFORMATION
  Report Type: 
  Country: JP (occurrence: JP)
  Receive Date: 20120813
  Receipt Date: 20120925
  Transmission Date: 20130627
  Serious: Yes (Death)
  Sender: FDA-Public Use
  Company Number: JP-AMGEN-JPNCT2012050233

PATIENT
  Age: 71 Year
  Sex: Female
  Weight: 56 kg

DRUGS (16)
  1. DARBEPOETIN ALFA [Suspect]
     Indication: NEPHROGENIC ANAEMIA
     Dosage: 30 mug, qd
     Route: 040
     Dates: start: 20111005, end: 20111005
  2. DARBEPOETIN ALFA [Suspect]
     Dosage: 30 mug, UNK
     Route: 040
     Dates: start: 20111111, end: 20111111
  3. DARBEPOETIN ALFA [Suspect]
     Dosage: 40 mug, UNK
     Route: 040
     Dates: start: 20111209, end: 20111209
  4. FESIN [Concomitant]
     Dosage: Uncertainty
     Route: 065
  5. OLMETEC [Concomitant]
     Dosage: Uncertainty
     Route: 048
  6. ARTIST [Concomitant]
     Dosage: Uncertainty
     Route: 048
  7. LIVALO [Concomitant]
     Dosage: Uncertainty
     Route: 048
  8. SODIUM BICARBONATE [Concomitant]
     Dosage: Uncertainty
     Route: 048
  9. ATELEC [Concomitant]
     Dosage: Uncertainty
     Route: 048
  10. BAYASPIRIN [Concomitant]
     Dosage: Uncertainty
     Route: 048
  11. TAKEPRON [Concomitant]
     Dosage: Uncertainty
     Route: 048
  12. LASIX [Concomitant]
     Indication: DIABETIC NEPHROPATHY
     Dosage: Uncertainty
     Route: 048
  13. LENDORMIN DAINIPPO [Concomitant]
     Dosage: Uncertainty
     Route: 048
  14. ALDOMET [Concomitant]
     Dosage: Uncertainty
     Route: 048
  15. DAIOKANZOTO [Concomitant]
     Dosage: Uncertainty
     Route: 048
  16. LOXONIN [Concomitant]
     Dosage: Uncertainty
     Route: 048

REACTIONS (2)
  - Sudden death [Fatal]
  - Acute myocardial infarction [Fatal]
